FAERS Safety Report 25740291 (Version 4)
Quarter: 2025Q4

REPORT INFORMATION
  Report Type: Spontaneous
  Country: US (occurrence: US)
  Receive Date: 20250829
  Receipt Date: 20251020
  Transmission Date: 20260117
  Serious: Yes (Hospitalization, Other)
  Sender: NOVO NORDISK
  Company Number: US-NOVOPROD-1505816

PATIENT
  Age: 63 Year
  Sex: Male
  Weight: 119.73 kg

DRUGS (4)
  1. OZEMPIC [Suspect]
     Active Substance: SEMAGLUTIDE
     Indication: Diabetes mellitus inadequate control
     Dosage: 1 MG, QW
     Route: 058
     Dates: start: 2019
  2. OZEMPIC [Suspect]
     Active Substance: SEMAGLUTIDE
     Dosage: 1 MG, QW
     Route: 058
  3. NovoFine Plus 4mm (32G) [Concomitant]
     Indication: Diabetes mellitus inadequate control
     Dosage: UNK
     Dates: start: 2019
  4. METFORMIN [Concomitant]
     Active Substance: METFORMIN HYDROCHLORIDE
     Indication: Diabetes mellitus inadequate control
     Dosage: UNK
     Route: 048

REACTIONS (3)
  - Atrial fibrillation [Recovered/Resolved]
  - Arrhythmia [Recovered/Resolved]
  - Glycosylated haemoglobin increased [Recovered/Resolved]

NARRATIVE: CASE EVENT DATE: 20210101
